FAERS Safety Report 20616484 (Version 3)
Quarter: 2022Q2

REPORT INFORMATION
  Report Type: Report from Study
  Country: US (occurrence: US)
  Receive Date: 20220321
  Receipt Date: 20220519
  Transmission Date: 20220721
  Serious: Yes (Hospitalization)
  Sender: FDA-Public Use
  Company Number: US-NOVARTISTESTPH-NVSC2022US062808

PATIENT
  Sex: Female
  Weight: 66.2 kg

DRUGS (26)
  1. SCEMBLIX [Suspect]
     Active Substance: ASCIMINIB HYDROCHLORIDE
     Indication: Philadelphia positive chronic myeloid leukaemia
     Dosage: 80 MG, QD
     Route: 048
  2. SCEMBLIX [Suspect]
     Active Substance: ASCIMINIB HYDROCHLORIDE
     Dosage: UNK
     Route: 065
     Dates: start: 20220219, end: 20220225
  3. SCEMBLIX [Suspect]
     Active Substance: ASCIMINIB HYDROCHLORIDE
     Dosage: UNK
     Route: 065
     Dates: start: 20220319
  4. VELTASSA [Concomitant]
     Active Substance: PATIROMER
     Indication: Hyperkalaemia
     Dosage: UNK
     Route: 065
  5. KAYEXALATE [Concomitant]
     Active Substance: SODIUM POLYSTYRENE SULFONATE
     Indication: Hyperkalaemia
     Dosage: PATIENT UNABLE TO TOLERATE KAYEXALATE, VOMIT AFTER CONSUMPTION
     Route: 065
  6. ARANESP [Concomitant]
     Active Substance: DARBEPOETIN ALFA
     Indication: Haemoglobin
     Dosage: 200 UG, Q2W
     Route: 065
  7. ALBUTEROL [Concomitant]
     Active Substance: ALBUTEROL
     Indication: Product used for unknown indication
     Dosage: PROVENTIL, 2.5MG/3ML, VVN Q 6 TO 8 H PRN
     Route: 065
     Dates: start: 20190809
  8. VENTOLIN HFA [Concomitant]
     Active Substance: ALBUTEROL SULFATE
     Indication: Product used for unknown indication
     Dosage: 108 UG 90 BASE / ACT INHALER, INL 1 PUFF Q 6 H PRF WHZ
     Route: 048
     Dates: start: 20190801
  9. ATORVASTATIN [Concomitant]
     Active Substance: ATORVASTATIN
     Indication: Product used for unknown indication
     Dosage: 40 MG (LIPITOR)
     Route: 048
     Dates: start: 20200214
  10. CALCITRIOL [Concomitant]
     Active Substance: CALCITRIOL
     Indication: Product used for unknown indication
     Dosage: 0.25 UG, FIVE TIMES A WEEK, ROCALTROL
     Route: 065
     Dates: start: 20190704
  11. CARVEDILOL [Concomitant]
     Active Substance: CARVEDILOL
     Indication: Product used for unknown indication
     Dosage: 25 MG
     Route: 048
     Dates: start: 20210113
  12. CHOLECALCIFEROL [Concomitant]
     Active Substance: CHOLECALCIFEROL
     Indication: Product used for unknown indication
     Dosage: 1 DOSAGE FORM, 2000 UNITS, VIT D
     Route: 048
  13. DICLOFENAC [Concomitant]
     Active Substance: DICLOFENAC
     Indication: Product used for unknown indication
     Dosage: 1.3 % (PLACE 1 PATCH ONTO THE SKIN 2 TIMES DAILY AS NEEDED, FLECTOR)
     Route: 062
  14. FENTANYL [Concomitant]
     Active Substance: FENTANYL
     Indication: Product used for unknown indication
     Dosage: 50 MCG/HR, PLACE 1 PATCH ONTO THE SKIN EVERY 72HRS. (DURAGESIC)
     Route: 062
  15. IMATINIB [Concomitant]
     Active Substance: IMATINIB
     Indication: Philadelphia positive chronic myeloid leukaemia
     Dosage: 100 MG, TAKE 4 TABLETS (400MG) IN THE MORNING AND 2 TABLETS (200MG) IN THE EVENING (GLEEVEC)
     Route: 065
     Dates: start: 20200701
  16. IMATINIB [Concomitant]
     Active Substance: IMATINIB
     Dosage: 100 MG, TAKE 4 TABLETS (400MG) IN THE MORNING AND 2 TABLETS (200MG) IN THE EVENING
     Route: 065
     Dates: start: 20201211
  17. IMATINIB [Concomitant]
     Active Substance: IMATINIB
     Dosage: 100 MG, TAKE 4 TABLETS (400MG) IN THE MORNING AND 2 TABLETS (200MG) IN THE EVENING
     Route: 065
     Dates: start: 20201214
  18. IMATINIB [Concomitant]
     Active Substance: IMATINIB
     Dosage: 100 MG, TAKE 4 TABLETS (400MG) IN THE MORNING AND 2 TABLETS (200MG) IN THE EVENING
     Route: 065
     Dates: start: 20210609
  19. IMATINIB [Concomitant]
     Active Substance: IMATINIB
     Dosage: 100 MG, TAKE 4 TABLETS (400MG) IN THE MORNING AND 2 TABLETS (200MG) IN THE EVENING
     Route: 065
     Dates: start: 20211130
  20. LEVOTHYROXINE [Concomitant]
     Active Substance: LEVOTHYROXINE
     Indication: Product used for unknown indication
     Dosage: 75 UG (SYNTHROID, LEVOTHROID)
     Route: 048
  21. LOPERAMIDE HYDROCHLORIDE [Concomitant]
     Active Substance: LOPERAMIDE HYDROCHLORIDE
     Indication: Product used for unknown indication
     Dosage: 3-4 TABLET AS NEEDED (IMODIUM PO)
     Route: 048
     Dates: start: 20100803
  22. METOPROLOL [Concomitant]
     Active Substance: METOPROLOL
     Indication: Product used for unknown indication
     Dosage: 50 MG, TAKE 75 MG 2 TIMES DAILY (LOPRESSOR)
     Route: 048
  23. ONDANSETRON [Concomitant]
     Active Substance: ONDANSETRON
     Indication: Product used for unknown indication
     Dosage: 4 MG, Q6H, AS NEEDED (ZOFRAN)
     Route: 048
     Dates: start: 20190201
  24. OXYCODONE HYDROCHLORIDE [Concomitant]
     Active Substance: OXYCODONE HYDROCHLORIDE
     Indication: Product used for unknown indication
     Dosage: 10 MG, AS NEEDED
     Route: 048
  25. TICAGRELOR [Concomitant]
     Active Substance: TICAGRELOR
     Indication: Product used for unknown indication
     Dosage: 90 MG, BRILINTA
     Route: 048
     Dates: start: 20200214
  26. TIZANIDINE [Concomitant]
     Active Substance: TIZANIDINE
     Indication: Product used for unknown indication
     Dosage: 4 MG, AS NEEDED (ZANAFLEX)
     Route: 048
     Dates: start: 20101105

REACTIONS (2)
  - Pneumonia [Unknown]
  - Dyspnoea [Recovered/Resolved]
